FAERS Safety Report 9170705 (Version 1)
Quarter: 2013Q1

REPORT INFORMATION
  Report Type: Spontaneous
  Country: US (occurrence: None)
  Receive Date: 20130311
  Receipt Date: 20130311
  Transmission Date: 20140127
  Serious: Yes (Hospitalization, Other)
  Sender: FDA-Public Use
  Company Number: ADR-2013-00371

PATIENT
  Age: 55 Year
  Sex: Female

DRUGS (4)
  1. BACLOFEN INTRATHECAL 0.3 MCG [Suspect]
     Indication: PAIN
     Dosage: 0.05690 MG/DAY
  2. MORPHINE [Concomitant]
  3. CLONIDINE [Concomitant]
  4. FENTANYL INTRATHEAL [Concomitant]

REACTIONS (3)
  - Oxygen saturation decreased [None]
  - Overdose [None]
  - Injury [None]
